FAERS Safety Report 5476497-5 (Version None)
Quarter: 2007Q3

REPORT INFORMATION
  Report Type: 
  Country: None (occurrence: None)
  Receive Date: 20070925
  Receipt Date: 20070718
  Transmission Date: 20080115
  Serious: Yes (Other)
  Sender: FDA-Public Use
  Company Number: PHEH2007US09661

PATIENT
  Age: 16 Year
  Sex: Female

DRUGS (1)
  1. FOCALIN XR [Suspect]
     Indication: ATTENTION DEFICIT/HYPERACTIVITY DISORDER
     Dosage: 10 MG
     Dates: start: 20070627, end: 20070701

REACTIONS (3)
  - AGITATION [None]
  - DEPRESSION [None]
  - IRRITABILITY [None]
